FAERS Safety Report 5036964-5 (Version None)
Quarter: 2006Q2

REPORT INFORMATION
  Report Type: 
  Country: None (occurrence: None)
  Receive Date: 20060626
  Receipt Date: 20060612
  Transmission Date: 20061013
  Serious: Yes (Other)
  Sender: FDA-Public Use
  Company Number: A-CH2006-12458

PATIENT
  Age: 72 Year
  Sex: Female
  Weight: 81 kg

DRUGS (8)
  1. TRACLEER [Suspect]
     Indication: PULMONARY HYPERTENSION
     Dosage: 125 + 62.5 MG, BID, ORAL
     Route: 048
     Dates: start: 20051121, end: 20051211
  2. TRACLEER [Suspect]
     Indication: PULMONARY HYPERTENSION
     Dosage: 125 + 62.5 MG, BID, ORAL
     Route: 048
     Dates: start: 20051212, end: 20060612
  3. ATACAND [Concomitant]
  4. LASIX [Concomitant]
  5. SINTROM [Concomitant]
  6. FENOFIBRATE [Concomitant]
  7. OMEPRAZOLE [Concomitant]
  8. LORAMET (LORMETAZEPAM) [Concomitant]

REACTIONS (4)
  - ALANINE AMINOTRANSFERASE INCREASED [None]
  - ASPARTATE AMINOTRANSFERASE INCREASED [None]
  - BLOOD ALKALINE PHOSPHATASE INCREASED [None]
  - LIVER FUNCTION TEST ABNORMAL [None]
